FAERS Safety Report 7623821-0 (Version None)
Quarter: 2011Q3

REPORT INFORMATION
  Report Type: 
  Country: None (occurrence: None)
  Receive Date: 20110720
  Receipt Date: 20110718
  Transmission Date: 20111222
  Serious: No
  Sender: FDA-Public Use
  Company Number: US-PFIZER INC-2011162402

PATIENT
  Sex: Male
  Weight: 83.9 kg

DRUGS (10)
  1. EFFIENT [Concomitant]
     Dosage: 10 MG, 1X/DAY
  2. VITAMIN D [Concomitant]
     Dosage: 500 IU, 1X/DAY
  3. METOPROLOL [Concomitant]
     Dosage: 25 MG, 1X/DAY
  4. OSTEO BI-FLEX [Concomitant]
     Dosage: UNK
  5. LIPITOR [Suspect]
     Indication: BLOOD CHOLESTEROL INCREASED
     Dosage: 80 MG, 1X/DAY
     Route: 048
     Dates: start: 20110623
  6. UROCIT-K [Concomitant]
     Indication: NEPHROLITHIASIS
     Dosage: TWO TABLETS, 2X/DAY
  7. ASPIRIN [Concomitant]
     Dosage: 81 MG, UNK
  8. LISINOPRIL [Concomitant]
     Dosage: 2.5 MG, 1X/DAY
  9. MULTI-VITAMINS [Concomitant]
     Dosage: UNK
  10. FISH OIL [Concomitant]
     Dosage: 1000 MG, 3X/DAY

REACTIONS (1)
  - DYSGEUSIA [None]
